FAERS Safety Report 4766257-2 (Version None)
Quarter: 2005Q3

REPORT INFORMATION
  Report Type: 
  Country: None (occurrence: None)
  Receive Date: 20050912
  Receipt Date: 20050831
  Transmission Date: 20060218
  Serious: Yes (Other)
  Sender: FDA-Public Use
  Company Number: US-MERCK-0509USA00080

PATIENT
  Age: 50 Year
  Sex: Male

DRUGS (4)
  1. VIOXX [Suspect]
     Indication: BACK PAIN
     Route: 048
     Dates: start: 20020828, end: 20020101
  2. VIOXX [Suspect]
     Indication: PROSTATIC PAIN
     Route: 048
     Dates: start: 20020828, end: 20020101
  3. STATIN (UNSPECIFIED) [Concomitant]
     Indication: BLOOD CHOLESTEROL INCREASED
     Route: 065
     Dates: start: 19900101
  4. [THERAPY UNSPECIFIED] [Concomitant]
     Indication: HYPERTENSION
     Route: 065
     Dates: start: 19730101

REACTIONS (2)
  - FATIGUE [None]
  - MYOCARDIAL INFARCTION [None]
